FAERS Safety Report 9372715 (Version 1)
Quarter: 2013Q2

REPORT INFORMATION
  Report Type: Report from Study
  Country: US (occurrence: US)
  Receive Date: 20130627
  Receipt Date: 20130627
  Transmission Date: 20140414
  Serious: Yes (Death)
  Sender: FDA-Public Use
  Company Number: US-MYLANLABS-2013S1006601

PATIENT
  Age: 59 Year
  Sex: Female
  Weight: 61.64 kg

DRUGS (8)
  1. CLOZAPINE TABLETS [Suspect]
     Indication: SCHIZOPHRENIA
     Route: 048
     Dates: start: 1998, end: 2013
  2. CLOZAPINE TABLETS [Suspect]
     Indication: SCHIZOPHRENIA
     Route: 048
     Dates: start: 1998, end: 2013
  3. PROZAC [Concomitant]
     Route: 048
  4. KLONOPIN [Concomitant]
     Dosage: 2 TABS QAM AND 3 TABS HS
     Route: 048
  5. ATENOLOL [Concomitant]
     Route: 048
  6. DILANTIN [Concomitant]
     Route: 048
  7. COGENTIN [Concomitant]
     Route: 048
  8. VALIUM [Concomitant]

REACTIONS (1)
  - Myocardial infarction [Fatal]
